FAERS Safety Report 6401273-6 (Version None)
Quarter: 2009Q4

REPORT INFORMATION
  Report Type: 
  Country: None (occurrence: None)
  Receive Date: 20091015
  Receipt Date: 20091001
  Transmission Date: 20100525
  Serious: Yes (Other)
  Sender: FDA-Public Use
  Company Number: PHHY2009JP42539

PATIENT
  Age: 76 Year
  Sex: Female

DRUGS (2)
  1. DIOVAN [Suspect]
     Dosage: UNK
     Route: 048
     Dates: start: 20030101
  2. VOLTAREN [Suspect]
     Dosage: UNK
     Route: 048
     Dates: start: 20090401

REACTIONS (1)
  - INTERSTITIAL LUNG DISEASE [None]
